FAERS Safety Report 4958919-9 (Version None)
Quarter: 2006Q1

REPORT INFORMATION
  Report Type: 
  Country: None (occurrence: None)
  Receive Date: 20060324
  Receipt Date: 20060313
  Transmission Date: 20060701
  Serious: Yes (Other)
  Sender: FDA-Public Use
  Company Number: DSK-2006-01450

PATIENT
  Age: 48 Year
  Sex: Male

DRUGS (11)
  1. EVOXAC [Suspect]
     Indication: SJOGREN'S SYNDROME
     Dosage: 60 MG (1 D), PER ORAL
     Route: 048
     Dates: start: 20031114, end: 20031212
  2. ARAVA [Suspect]
     Indication: RHEUMATOID ARTHRITIS
     Dosage: 20 MG, PER ORAL
     Route: 048
     Dates: start: 20031029, end: 20031212
  3. BAYASPIRIN                  (ACETYLSALICYLIC ACID) (ACETYLSALICYLIC AC [Concomitant]
  4. PAXIL [Concomitant]
  5. RISPERDAL [Concomitant]
  6. CLINORIL  (SULINDAC) (SULINDAC) [Concomitant]
  7. PROMAC (POLAPREZINC) [Concomitant]
  8. ISCOTIN (ISONIAZID) (ISONIAZID) [Concomitant]
  9. SONALON (ALENDRONIC ACID) [Concomitant]
  10. DORAL [Concomitant]
  11. PREDNISOLONE [Concomitant]

REACTIONS (3)
  - ANAEMIA [None]
  - FAECES DISCOLOURED [None]
  - LIVER DISORDER [None]
